FAERS Safety Report 13963062 (Version 6)
Quarter: 2018Q2

REPORT INFORMATION
  Report Type: Spontaneous
  Country: US (occurrence: US)
  Receive Date: 20170913
  Receipt Date: 20180427
  Transmission Date: 20180711
  Serious: No
  Sender: FDA-Public Use
  Company Number: US-PFIZER INC-2017242267

PATIENT
  Age: 65 Year
  Sex: Female
  Weight: 136 kg

DRUGS (4)
  1. JANTOVEN [Concomitant]
     Active Substance: WARFARIN SODIUM
     Indication: ATRIAL FIBRILLATION
     Dosage: 7.5 MG, UNK
  2. IBRANCE [Suspect]
     Active Substance: PALBOCICLIB
     Indication: BREAST CANCER METASTATIC
     Dosage: UNK
  3. IBRANCE [Suspect]
     Active Substance: PALBOCICLIB
     Dosage: 125 MG, CYCLIC (ONCE A DAY FOR 3 WEEKS AND OFF 7 DAYS)
     Route: 048
     Dates: start: 201705
  4. IBRANCE [Suspect]
     Active Substance: PALBOCICLIB
     Dosage: 125 MG, CYCLIC (ONCE FOR 21 DAYS)
     Dates: start: 201705

REACTIONS (10)
  - Upper respiratory tract congestion [Unknown]
  - Drug dispensing error [Unknown]
  - White blood cell count decreased [Unknown]
  - Epistaxis [Recovered/Resolved]
  - Alopecia [Not Recovered/Not Resolved]
  - Tumour marker increased [Unknown]
  - Incorrect dosage administered [Unknown]
  - Neck pain [Unknown]
  - Fatigue [Unknown]
  - Headache [Unknown]

NARRATIVE: CASE EVENT DATE: 201708
